FAERS Safety Report 7885890-2 (Version None)
Quarter: 2011Q4

REPORT INFORMATION
  Report Type: 
  Country: None (occurrence: None)
  Receive Date: 20111102
  Receipt Date: 20110629
  Transmission Date: 20120403
  Serious: No
  Sender: FDA-Public Use
  Company Number: US-AMGEN-USASP2011033438

PATIENT
  Age: 56 Year
  Sex: Female

DRUGS (3)
  1. HYDROCHLOROTHIAZIDE [Concomitant]
  2. ENBREL [Suspect]
     Indication: RHEUMATOID ARTHRITIS
     Dosage: 50 MG, QWK
  3. FOLIC ACID [Concomitant]

REACTIONS (3)
  - INJECTION SITE SWELLING [None]
  - DIZZINESS [None]
  - INJECTION SITE WARMTH [None]
